FAERS Safety Report 7065712-2 (Version None)
Quarter: 2010Q4

REPORT INFORMATION
  Report Type: 
  Country: None (occurrence: None)
  Receive Date: 20101027
  Receipt Date: 20101014
  Transmission Date: 20110411
  Serious: Yes (Hospitalization, Other)
  Sender: FDA-Public Use
  Company Number: PHHY2010JP36331

PATIENT
  Sex: Female

DRUGS (6)
  1. ZOMETA [Suspect]
     Indication: METASTASES TO BONE
     Dosage: 4 MG, (PER ADMINISTRATION)
     Route: 041
     Dates: start: 20070101, end: 20090323
  2. PACLITAXEL [Concomitant]
     Indication: BREAST CANCER
     Dosage: UNK
     Route: 041
     Dates: start: 20070101, end: 20090701
  3. ARIMIDEX [Concomitant]
     Indication: BREAST CANCER
     Dosage: 1MG
     Route: 048
     Dates: start: 20070101
  4. FLOMOX [Concomitant]
     Indication: TOOTH EXTRACTION
     Dosage: 30 MG
     Route: 048
     Dates: start: 20090323, end: 20100420
  5. CRAVIT [Concomitant]
     Dosage: 50 MG
     Route: 048
     Dates: start: 20100608, end: 20100615
  6. RULID [Concomitant]
     Indication: BREAST CANCER
     Dosage: 300 MG
     Route: 048
     Dates: start: 20100705, end: 20100712

REACTIONS (20)
  - ANAEMIA [None]
  - BLOOD ALKALINE PHOSPHATASE INCREASED [None]
  - BLOOD CHOLESTEROL INCREASED [None]
  - BLOOD TRIGLYCERIDES INCREASED [None]
  - C-REACTIVE PROTEIN INCREASED [None]
  - DENTAL FISTULA [None]
  - EPIDERMAL GROWTH FACTOR RECEPTOR INCREASED [None]
  - GAMMA-GLUTAMYLTRANSFERASE DECREASED [None]
  - GASTRIC CANCER [None]
  - GASTRIC OPERATION [None]
  - HAEMATOCRIT DECREASED [None]
  - NEOPLASM MALIGNANT [None]
  - OSTEONECROSIS OF JAW [None]
  - PLATELET COUNT INCREASED [None]
  - PRIMARY SEQUESTRUM [None]
  - PRURITUS [None]
  - PURULENCE [None]
  - TOOTH EXTRACTION [None]
  - TOOTHACHE [None]
  - WOUND TREATMENT [None]
